FAERS Safety Report 5217809-7 (Version None)
Quarter: 2007Q1

REPORT INFORMATION
  Report Type: 
  Country: None (occurrence: None)
  Receive Date: 20061130
  Receipt Date: 20060927
  Transmission Date: 20070707
  Serious: Yes (Hospitalization, Other)
  Sender: FDA-Public Use
  Company Number: US200607002716

PATIENT
  Age: 43 Year
  Sex: Female
  Weight: 43.5 kg

DRUGS (1)
  1. ZYPREXA [Suspect]
     Indication: DRUG USE FOR UNKNOWN INDICATION
     Dosage: 7.5 MG, UNK, ORAL
     Route: 048
     Dates: start: 19970101, end: 20050101

REACTIONS (2)
  - CONVULSION [None]
  - PANCREATITIS [None]
